FAERS Safety Report 13656857 (Version 5)
Quarter: 2018Q2

REPORT INFORMATION
  Report Type: Spontaneous
  Country: US (occurrence: US)
  Receive Date: 20170615
  Receipt Date: 20180620
  Transmission Date: 20180711
  Serious: Yes (Hospitalization, Other)
  Sender: FDA-Public Use
  Company Number: US-ACTELION-A-NJ2017-154815

PATIENT
  Age: 22 Year
  Sex: Female
  Weight: 58.5 kg

DRUGS (5)
  1. NIFEDIPINE. [Concomitant]
     Active Substance: NIFEDIPINE
  2. OPSUMIT [Suspect]
     Active Substance: MACITENTAN
     Indication: PULMONARY ARTERIAL HYPERTENSION
     Dosage: 10 MG, QD
     Route: 048
     Dates: start: 20150524, end: 20170526
  3. SILDENAFIL CITRATE. [Concomitant]
     Active Substance: SILDENAFIL CITRATE
  4. CELLCEPT [Concomitant]
     Active Substance: MYCOPHENOLATE MOFETIL\MYCOPHENOLATE MOFETIL HYDROCHLORIDE
     Indication: CONNECTIVE TISSUE DISORDER
     Dosage: 500 MG, UNK
     Route: 048
     Dates: start: 201505
  5. PREDNISONE. [Concomitant]
     Active Substance: PREDNISONE
     Indication: CONNECTIVE TISSUE DISORDER
     Dosage: 4 MG, UNK
     Route: 048
     Dates: start: 2014

REACTIONS (33)
  - Hepatic enzyme increased [Recovering/Resolving]
  - Oxygen saturation decreased [Unknown]
  - Nausea [Unknown]
  - Suicidal ideation [Recovered/Resolved]
  - Liver tenderness [Unknown]
  - Pain in extremity [Recovered/Resolved]
  - Dehydration [Unknown]
  - Cough [Unknown]
  - Aspartate aminotransferase increased [Recovering/Resolving]
  - Pancytopenia [Recovering/Resolving]
  - Renal pain [Unknown]
  - Substance-induced psychotic disorder [Unknown]
  - Diplopia [Unknown]
  - Vomiting [Unknown]
  - Blood albumin decreased [Unknown]
  - Rash [Unknown]
  - Alanine aminotransferase increased [Recovering/Resolving]
  - Hyponatraemia [Unknown]
  - Arthralgia [Unknown]
  - Haemoglobin decreased [Recovered/Resolved]
  - Pyrexia [Unknown]
  - Sepsis [Unknown]
  - Pulmonary pain [Unknown]
  - Dyspnoea [Unknown]
  - Dizziness [Unknown]
  - Aspiration pleural cavity [Unknown]
  - Systemic lupus erythematosus [Unknown]
  - Diarrhoea [Unknown]
  - Rash pruritic [Unknown]
  - Pneumonia [Unknown]
  - Pleural effusion [Recovered/Resolved]
  - Hallucination, visual [Unknown]
  - Chest discomfort [Recovered/Resolved]

NARRATIVE: CASE EVENT DATE: 201703
